FAERS Safety Report 15738245 (Version 3)
Quarter: 2019Q1

REPORT INFORMATION
  Report Type: Spontaneous
  Country: US (occurrence: US)
  Receive Date: 20181219
  Receipt Date: 20190220
  Transmission Date: 20190417
  Serious: No
  Sender: FDA-Public Use
  Company Number: US-ASTRAZENECA-2018SF64105

PATIENT
  Age: 3022 Week
  Sex: Male
  Weight: 112 kg

DRUGS (5)
  1. ALBUTEROL. [Concomitant]
     Active Substance: ALBUTEROL
     Indication: INHALATION THERAPY
     Dosage: AS REQUIRED
     Route: 055
  2. MONTELUKAST [Concomitant]
     Active Substance: MONTELUKAST SODIUM
     Indication: HYPERSENSITIVITY
     Route: 048
  3. SYMBICORT [Suspect]
     Active Substance: BUDESONIDE\FORMOTEROL FUMARATE DIHYDRATE
     Indication: CHRONIC OBSTRUCTIVE PULMONARY DISEASE
     Dosage: 160/4.5 MCG, TWO PUFFS TWICE DAILY
     Route: 055
     Dates: start: 201802
  4. GLIMEPIRIDE. [Concomitant]
     Active Substance: GLIMEPIRIDE
     Indication: BLOOD GLUCOSE ABNORMAL
     Route: 048
  5. SPIRIVA [Concomitant]
     Active Substance: TIOTROPIUM BROMIDE MONOHYDRATE
     Indication: INHALATION THERAPY
     Route: 055

REACTIONS (17)
  - Off label use [Unknown]
  - White blood cell count increased [Unknown]
  - Oxygen saturation decreased [Unknown]
  - Chest discomfort [Unknown]
  - Device failure [Unknown]
  - Type 2 diabetes mellitus [Unknown]
  - Feeling abnormal [Unknown]
  - Device malfunction [Unknown]
  - Asthenia [Unknown]
  - Intentional product misuse [Unknown]
  - Dyspnoea [Unknown]
  - Fatigue [Unknown]
  - Hypoacusis [Unknown]
  - Weight increased [Unknown]
  - Circumstance or information capable of leading to device use error [Unknown]
  - Tympanic membrane perforation [Unknown]
  - Malaise [Unknown]

NARRATIVE: CASE EVENT DATE: 201802
